FAERS Safety Report 13396016 (Version 1)
Quarter: 2017Q2

REPORT INFORMATION
  Report Type: Spontaneous
  Country: JP (occurrence: JP)
  Receive Date: 20170403
  Receipt Date: 20170403
  Transmission Date: 20170830
  Serious: Yes (Hospitalization, Other)
  Sender: FDA-Public Use
  Company Number: JP-GLAXOSMITHKLINE-JP2017JPN019121

PATIENT
  Age: 76 Year
  Sex: Male
  Weight: 64 kg

DRUGS (1)
  1. VALTREX [Suspect]
     Active Substance: VALACYCLOVIR HYDROCHLORIDE
     Indication: HERPES ZOSTER
     Dosage: 1000 MG, BID
     Route: 048
     Dates: start: 20170206, end: 20170206

REACTIONS (4)
  - Restlessness [Recovering/Resolving]
  - Prescribed overdose [Unknown]
  - Toxic encephalopathy [Recovering/Resolving]
  - Delirium [Recovering/Resolving]

NARRATIVE: CASE EVENT DATE: 20170206
